FAERS Safety Report 16014722 (Version 2)
Quarter: 2019Q3

REPORT INFORMATION
  Report Type: Report from Study
  Country: DE (occurrence: DE)
  Receive Date: 20190227
  Receipt Date: 20190711
  Transmission Date: 20191004
  Serious: Yes (Hospitalization)
  Sender: FDA-Public Use
  Company Number: PHHY2019DE041102

PATIENT
  Age: 83 Year
  Sex: Female
  Weight: 58 kg

DRUGS (3)
  1. COSENTYX [Suspect]
     Active Substance: SECUKINUMAB
     Indication: ANKYLOSING SPONDYLITIS
     Dosage: 150 MG, QW (PREFILLED PEN SYRINGE)
     Route: 065
     Dates: start: 20160113
  2. COSENTYX [Suspect]
     Active Substance: SECUKINUMAB
     Dosage: 150 MG, EVERY 4 WEEKS (PREFILLED PEN SYRINGE)
     Route: 065
     Dates: start: 20181119
  3. COSENTYX [Suspect]
     Active Substance: SECUKINUMAB
     Dosage: 150 MG, EVERY 4 WEEKS (PREFILLED PEN SYRINGE)
     Route: 065
     Dates: end: 20181024

REACTIONS (1)
  - Neuropathy peripheral [Recovered/Resolved with Sequelae]

NARRATIVE: CASE EVENT DATE: 20181024
